FAERS Safety Report 14431266 (Version 6)
Quarter: 2022Q3

REPORT INFORMATION
  Report Type: Report from Study
  Country: ZA (occurrence: ZA)
  Receive Date: 20180124
  Receipt Date: 20220623
  Transmission Date: 20221026
  Serious: Yes (Hospitalization, Other)
  Sender: FDA-Public Use
  Company Number: PHHY2017ZA132323

PATIENT
  Age: 51 Year
  Sex: Female

DRUGS (5)
  1. FINGOLIMOD HYDROCHLORIDE [Suspect]
     Active Substance: FINGOLIMOD HYDROCHLORIDE
     Indication: Multiple sclerosis
     Dosage: 0.5 MG, QD
     Route: 048
     Dates: start: 20170906
  2. FINGOLIMOD HYDROCHLORIDE [Suspect]
     Active Substance: FINGOLIMOD HYDROCHLORIDE
     Indication: Relapsing-remitting multiple sclerosis
     Dosage: 0.5 MG, QD
     Route: 048
  3. FINGOLIMOD HYDROCHLORIDE [Suspect]
     Active Substance: FINGOLIMOD HYDROCHLORIDE
     Dosage: 0.5 MG, QD
     Route: 048
  4. DULOXETINE HYDROCHLORIDE [Concomitant]
     Active Substance: DULOXETINE HYDROCHLORIDE
     Indication: Product used for unknown indication
     Dosage: 1 DF, QD (AT NIGHT)
     Route: 065
  5. SOLU-MEDROL [Concomitant]
     Active Substance: METHYLPREDNISOLONE SODIUM SUCCINATE
     Indication: Product used for unknown indication
     Dosage: UNK
     Route: 065

REACTIONS (25)
  - Multiple sclerosis relapse [Unknown]
  - Choking [Unknown]
  - Lymphocyte count decreased [Unknown]
  - Heart rate irregular [Recovering/Resolving]
  - Blood pressure fluctuation [Recovering/Resolving]
  - Hot flush [Unknown]
  - Chromaturia [Unknown]
  - Abdominal pain [Unknown]
  - Dysphonia [Unknown]
  - Chest discomfort [Unknown]
  - Chest pain [Unknown]
  - Oropharyngeal pain [Unknown]
  - Balance disorder [Unknown]
  - Hypoaesthesia [Unknown]
  - Upper-airway cough syndrome [Unknown]
  - Influenza like illness [Unknown]
  - Gastrooesophageal reflux disease [Recovering/Resolving]
  - Flatulence [Unknown]
  - Headache [Recovering/Resolving]
  - Fatigue [Recovering/Resolving]
  - White blood cell count decreased [Unknown]
  - Dyspnoea [Unknown]
  - Cough [Unknown]
  - Pharyngitis [Unknown]
  - Illness [Unknown]

NARRATIVE: CASE EVENT DATE: 20170906
